FAERS Safety Report 7846588-X (Version None)
Quarter: 2011Q4

REPORT INFORMATION
  Report Type: 
  Country: None (occurrence: None)
  Receive Date: 20111025
  Receipt Date: 20111020
  Transmission Date: 20120403
  Serious: Yes (Disabling)
  Sender: FDA-Public Use
  Company Number: NL-ABBOTT-11P-114-0867272-00

PATIENT
  Sex: Female
  Weight: 78 kg

DRUGS (5)
  1. QVAR 40 [Concomitant]
     Indication: PRODUCT USED FOR UNKNOWN INDICATION
     Dosage: 50 EFA AUTOINHALER 50MCG/DO SPBS 200DO
     Route: 055
     Dates: start: 20081010
  2. BETAHISTINE [Concomitant]
     Indication: PRODUCT USED FOR UNKNOWN INDICATION
     Route: 048
     Dates: start: 20070515
  3. FORADIL [Concomitant]
     Indication: PRODUCT USED FOR UNKNOWN INDICATION
     Dosage: CFKVR 12MCG/DO SPBS 100 DOSES+INH
     Route: 055
     Dates: start: 20081010, end: 20111013
  4. CLARITHROMYCIN [Suspect]
     Indication: BRONCHITIS
     Dosage: 250MG/1 TABLET
     Route: 048
     Dates: start: 20090131, end: 20090131
  5. SPIRIVA [Concomitant]
     Indication: PRODUCT USED FOR UNKNOWN INDICATION
     Dosage: 18MCG, 1PUFF 2 TIMES A DAY
     Route: 055
     Dates: start: 20081010

REACTIONS (8)
  - HYPERACUSIS [None]
  - VERTIGO [None]
  - DEAFNESS [None]
  - TINNITUS [None]
  - ACTIVITIES OF DAILY LIVING IMPAIRED [None]
  - NAUSEA [None]
  - DYSGEUSIA [None]
  - VOMITING [None]
